FAERS Safety Report 17855121 (Version 6)
Quarter: 2020Q4

REPORT INFORMATION
  Report Type: Spontaneous
  Country: DE (occurrence: DE)
  Receive Date: 20200603
  Receipt Date: 20201015
  Transmission Date: 20210113
  Serious: Yes (Hospitalization, Other)
  Sender: FDA-Public Use
  Company Number: DE-JNJFOC-20200528836

PATIENT
  Age: 34 Year
  Sex: Male

DRUGS (12)
  1. VAQTA [Suspect]
     Active Substance: HEPATITIS A VIRUS STRAIN CR 326F ANTIGEN (FORMALDEHYDE INACTIVATED)
     Indication: PROPHYLAXIS
     Dosage: FREQUENCY OF PRODUCT : 1S
     Route: 065
     Dates: start: 20000818
  2. TD PUR [Suspect]
     Active Substance: CLOSTRIDIUM TETANI TOXOID ANTIGEN (FORMALDEHYDE INACTIVATED)\CORYNEBACTERIUM DIPHTHERIAE TOXOID ANTIGEN (FORMALDEHYDE INACTIVATED)
     Indication: PROPHYLAXIS
     Route: 065
     Dates: start: 19990611, end: 19990611
  3. TD PUR [Suspect]
     Active Substance: CLOSTRIDIUM TETANI TOXOID ANTIGEN (FORMALDEHYDE INACTIVATED)\CORYNEBACTERIUM DIPHTHERIAE TOXOID ANTIGEN (FORMALDEHYDE INACTIVATED)
     Route: 065
     Dates: start: 19980929
  4. HEPATITIS A VACCINE [Suspect]
     Active Substance: HEPATITIS A VIRUS STRAIN HM175 ANTIGEN (FORMALDEHYDE INACTIVATED)
     Indication: PROPHYLAXIS
     Route: 065
     Dates: start: 20000816
  5. IPV VIRELON [Concomitant]
     Active Substance: POLIOMYELITIS VACCINE
     Indication: PROPHYLAXIS
     Route: 065
     Dates: start: 19990611, end: 19990611
  6. ITRACONAZOLE. [Suspect]
     Active Substance: ITRACONAZOLE
     Indication: PROPHYLAXIS
     Route: 048
  7. HAVRIX [Suspect]
     Active Substance: HEPATITIS A VIRUS STRAIN HM175 ANTIGEN (FORMALDEHYDE INACTIVATED)
     Indication: PROPHYLAXIS
     Route: 065
     Dates: start: 20010508, end: 20010508
  8. MUTAGRIP S [Concomitant]
     Active Substance: INFLUENZA VIRUS VACCINE
     Indication: PROPHYLAXIS
     Dosage: FREQUENCY OF PRODUCT : 1S NO OF SEPARATE DOSES : 1?INTERVAL : 1 DAYS
     Route: 065
     Dates: start: 19981103, end: 19981103
  9. TD PUR [Suspect]
     Active Substance: CLOSTRIDIUM TETANI TOXOID ANTIGEN (FORMALDEHYDE INACTIVATED)\CORYNEBACTERIUM DIPHTHERIAE TOXOID ANTIGEN (FORMALDEHYDE INACTIVATED)
     Route: 065
     Dates: start: 19980928, end: 19980928
  10. STAMARIL [Concomitant]
     Active Substance: YELLOW FEVER VIRUS STRAIN 17D-204 LIVE ANTIGEN
     Indication: PROPHYLAXIS
     Dosage: ; IN TOTAL
     Route: 065
     Dates: start: 20000816, end: 20000816
  11. IPV VIRELON [Concomitant]
     Active Substance: POLIOMYELITIS VACCINE
     Indication: PROPHYLAXIS
     Route: 065
     Dates: start: 19980928, end: 19980928
  12. VAQTA [Suspect]
     Active Substance: HEPATITIS A VIRUS STRAIN CR 326F ANTIGEN (FORMALDEHYDE INACTIVATED)
     Dosage: FREQUENCY OF PRODUCT : 1S
     Route: 065
     Dates: start: 20000816

REACTIONS (31)
  - Myelitis transverse [Unknown]
  - Asthenia [Unknown]
  - Vaccination complication [Unknown]
  - Hypoaesthesia [Unknown]
  - Allergy to metals [Unknown]
  - Cognitive disorder [Unknown]
  - Neurological symptom [Unknown]
  - Vomiting [Unknown]
  - Myelitis [Unknown]
  - Fatigue [Recovered/Resolved]
  - Rheumatic disorder [Unknown]
  - Cough [Not Recovered/Not Resolved]
  - Acute disseminated encephalomyelitis [Unknown]
  - Sensory disturbance [Unknown]
  - Irritable bowel syndrome [Unknown]
  - Gastroenteritis [Unknown]
  - Loss of personal independence in daily activities [Not Recovered/Not Resolved]
  - Vertigo [Unknown]
  - Acute sinusitis [Unknown]
  - Dizziness [Unknown]
  - Multiple sclerosis [Unknown]
  - Abdominal discomfort [Unknown]
  - Encephalomyelitis [Unknown]
  - Malaise [Recovered/Resolved]
  - Diarrhoea [Recovered/Resolved]
  - Paraplegia [Unknown]
  - Ventricular arrhythmia [Unknown]
  - Gait disturbance [Recovered/Resolved]
  - Paraesthesia [Recovering/Resolving]
  - Cardiovascular disorder [Unknown]
  - Coordination abnormal [Unknown]

NARRATIVE: CASE EVENT DATE: 2001
